FAERS Safety Report 10699469 (Version 4)
Quarter: 2016Q1

REPORT INFORMATION
  Report Type: Spontaneous
  Country: DK (occurrence: DK)
  Receive Date: 20150109
  Receipt Date: 20160119
  Transmission Date: 20160525
  Serious: Yes (Life-Threatening, Hospitalization, Other)
  Sender: FDA-Public Use
  Company Number: DK-UCBSA-2015000570

PATIENT
  Age: 81 Year
  Sex: Male
  Weight: 88 kg

DRUGS (8)
  1. LANSOPRAZOLE. [Concomitant]
     Active Substance: LANSOPRAZOLE
     Indication: REFLUX GASTRITIS
     Dosage: UNK
  2. CIMZIA [Suspect]
     Active Substance: CERTOLIZUMAB PEGOL
     Indication: RHEUMATOID ARTHRITIS
     Dosage: 200 MG, EV 2 WEEKS(QOW); STRENGTH: 200 MG
     Route: 058
     Dates: end: 20140929
  3. METHOTREXAT SANDOZ [Suspect]
     Active Substance: METHOTREXATE SODIUM
     Indication: RHEUMATOID ARTHRITIS
     Dosage: 10 TABLETS PER WEEK; STRENGTH: 2.5 MG
     Route: 048
     Dates: end: 20140929
  4. VENTOLINE [Concomitant]
     Active Substance: ALBUTEROL
     Indication: ASTHMA
     Dosage: UNK
     Route: 055
  5. BURANA [Concomitant]
     Active Substance: IBUPROFEN
     Indication: PAIN
     Dosage: 400 MG, 2X/DAY (BID)
     Route: 048
  6. PINEX [Concomitant]
     Active Substance: ACETAMINOPHEN
     Indication: PAIN
     Dosage: 1 G, 2X/DAY (BID), STRYKE: 500 MG
     Route: 048
  7. KALEORID [Concomitant]
     Active Substance: POTASSIUM CHLORIDE
     Indication: HYPOKALAEMIA
     Dosage: 750 MG, 2X/DAY (BID)
     Route: 048
  8. JERN C [Concomitant]
     Indication: IRON DEFICIENCY ANAEMIA
     Dosage: 100 MG, ONCE DAILY (QD)
     Route: 048

REACTIONS (7)
  - Cough [Not Recovered/Not Resolved]
  - Acute respiratory distress syndrome [Unknown]
  - Pyrexia [Recovered/Resolved]
  - Interstitial lung disease [Recovering/Resolving]
  - Atrial fibrillation [Not Recovered/Not Resolved]
  - Cardiac failure [Unknown]
  - Hypersensitivity [Recovered/Resolved]

NARRATIVE: CASE EVENT DATE: 2014
